FAERS Safety Report 9226730 (Version 1)
Quarter: 2013Q2

REPORT INFORMATION
  Report Type: Spontaneous
  Country: US (occurrence: None)
  Receive Date: 20130410
  Receipt Date: 20130410
  Transmission Date: 20140414
  Serious: Yes (Other)
  Sender: FDA-Public Use
  Company Number: TPA2013A02602

PATIENT
  Age: 54 Year
  Sex: Male
  Weight: 108.86 kg

DRUGS (3)
  1. ULORIC (FEBUXOSTAT) [Suspect]
     Indication: HYPERURICAEMIA
     Route: 048
     Dates: start: 2008
  2. COLCRYS [Suspect]
     Dosage: 0.6 MG, PRN, PER ORAL
     Route: 048
  3. HYDROCODONE (HYDROCODONE) [Concomitant]

REACTIONS (2)
  - Gout [None]
  - Condition aggravated [None]
